FAERS Safety Report 10276234 (Version 2)
Quarter: 2014Q3

REPORT INFORMATION
  Report Type: Not Available
  Country: US (occurrence: US)
  Receive Date: 20140703
  Receipt Date: 20140703
  Transmission Date: 20150326
  Serious: No
  Sender: FDA-Public Use
  Company Number: US-LUPIN PHARMACEUTICALS INC.-E2B_00001714

PATIENT
  Age: 53 Year
  Sex: Female
  Weight: 95.34 kg

DRUGS (1)
  1. DULOXETINE DELAYED-RELEASE 60 MG CAPSULES USP [Suspect]
     Active Substance: DULOXETINE
     Indication: PRODUCT USED FOR UNKNOWN INDICATION
     Dates: start: 20140209, end: 20140210

REACTIONS (7)
  - Insomnia [Recovered/Resolved]
  - Product substitution issue [Recovered/Resolved]
  - Nausea [Recovered/Resolved]
  - Nightmare [Recovered/Resolved]
  - Feeling jittery [Recovered/Resolved]
  - Photopsia [Recovered/Resolved]
  - Nervousness [Recovered/Resolved]

NARRATIVE: CASE EVENT DATE: 20140209
